FAERS Safety Report 25114661 (Version 2)
Quarter: 2025Q3

REPORT INFORMATION
  Report Type: Spontaneous
  Country: MX (occurrence: MX)
  Receive Date: 20250324
  Receipt Date: 20250916
  Transmission Date: 20251021
  Serious: No
  Sender: AMGEN
  Company Number: MX-AMGEN-MEXSP2025054957

PATIENT
  Sex: Female

DRUGS (1)
  1. ADALIMUMAB [Suspect]
     Active Substance: ADALIMUMAB
     Indication: Rheumatoid arthritis
     Route: 065

REACTIONS (1)
  - Drug ineffective [Unknown]
